FAERS Safety Report 17325381 (Version 2)
Quarter: 2020Q1

REPORT INFORMATION
  Report Type: Spontaneous
  Country: IT (occurrence: IT)
  Receive Date: 20200127
  Receipt Date: 20200205
  Transmission Date: 20200409
  Serious: Yes (Other)
  Sender: FDA-Public Use
  Company Number: NVSC2019IT022695

PATIENT
  Age: 68 Year
  Sex: Male

DRUGS (13)
  1. PREDNISOLONE. [Suspect]
     Active Substance: PREDNISOLONE
     Indication: RENAL TRANSPLANT
     Dosage: UNK
     Route: 065
  2. VORICONAZOLE. [Suspect]
     Active Substance: VORICONAZOLE
     Indication: ANTIFUNGAL TREATMENT
     Dosage: LOADING DOSE 6 MG/KG [400 MG] EVERY 12 HOURS FOR 2 DOSES
     Route: 048
     Dates: start: 201701
  3. TRIMETOPRIM SULFAMETOXAZOL [Concomitant]
     Active Substance: SULFAMETHOXAZOLE\TRIMETHOPRIM
     Indication: ANTIFUNGAL PROPHYLAXIS
     Dosage: UNK, Q3W
     Route: 065
  4. MYCOPHENOLATE MOFETIL. [Suspect]
     Active Substance: MYCOPHENOLATE MOFETIL
     Indication: IMMUNOSUPPRESSANT DRUG THERAPY
  5. VORICONAZOLE. [Suspect]
     Active Substance: VORICONAZOLE
     Dosage: 200 MG, UNK (WAS ADJUSTED FROM 300 MG TO 200 MG)
     Route: 048
     Dates: start: 201701
  6. TACROLIMUS. [Concomitant]
     Active Substance: TACROLIMUS
     Indication: RENAL TRANSPLANT
     Dosage: 0.5 MG
     Route: 065
  7. TACROLIMUS. [Concomitant]
     Active Substance: TACROLIMUS
     Indication: IMMUNOSUPPRESSANT DRUG THERAPY
  8. VORICONAZOLE. [Suspect]
     Active Substance: VORICONAZOLE
     Indication: EVIDENCE BASED TREATMENT
     Dosage: 4 MG/KG [300 MG] EVERY 12 HOURS
     Route: 048
     Dates: start: 201701
  9. PREDNISOLONE. [Suspect]
     Active Substance: PREDNISOLONE
     Indication: IMMUNOSUPPRESSANT DRUG THERAPY
  10. ISAVUCONAZOLE [Interacting]
     Active Substance: ISAVUCONAZOLE
     Indication: ALTERNARIA INFECTION
     Dosage: 200 MG, QD
     Route: 042
  11. MYCOPHENOLATE MOFETIL. [Suspect]
     Active Substance: MYCOPHENOLATE MOFETIL
     Indication: RENAL TRANSPLANT
     Dosage: UNK (WITH A TARGET TROUGH LEVEL OF BETWEEN 5 AND 10 NG/ML)
     Route: 065
  12. ISAVUCONAZOLE [Interacting]
     Active Substance: ISAVUCONAZOLE
     Indication: ANTIFUNGAL TREATMENT
     Dosage: 200 MG, EVERY 8 HOURS (FOR THE FIRST TWO DAYS)
     Route: 042
  13. BASILIXIMAB [Concomitant]
     Active Substance: BASILIXIMAB
     Indication: RENAL TRANSPLANT
     Dosage: 20 MG, UNKNOWN FREQ. (INDUCTION THERAPY PERIOPERATIVELY AND ON POSTOPERATIVE DAY 4)
     Route: 065

REACTIONS (7)
  - Dizziness [Unknown]
  - Drug ineffective [Recovered/Resolved]
  - Hallucination [Unknown]
  - Product use in unapproved indication [Unknown]
  - Infection reactivation [Unknown]
  - Eye irritation [Unknown]
  - Confusional state [Unknown]

NARRATIVE: CASE EVENT DATE: 2017
